FAERS Safety Report 7558938-2 (Version None)
Quarter: 2011Q2

REPORT INFORMATION
  Report Type: 
  Country: None (occurrence: None)
  Receive Date: 20110613
  Receipt Date: 20110602
  Transmission Date: 20111010
  Serious: Yes (Other)
  Sender: FDA-Public Use
  Company Number: GGEL20110600638

PATIENT
  Age: 60 Year
  Sex: Male

DRUGS (1)
  1. TOPIRAMATE [Suspect]
     Indication: EPILEPSY
     Dosage: 100 MILLIGRAM, 2 IN 1 D), ORAL USE

REACTIONS (1)
  - NEOPLASM MALIGNANT [None]
